FAERS Safety Report 7808403-X (Version None)
Quarter: 2011Q4

REPORT INFORMATION
  Report Type: 
  Country: None (occurrence: None)
  Receive Date: 20111007
  Receipt Date: 20110929
  Transmission Date: 20120403
  Serious: Yes (Life-Threatening, Hospitalization, Other)
  Sender: FDA-Public Use
  Company Number: UKP11000075

PATIENT
  Age: 61 Year
  Sex: Female
  Weight: 5706 kg

DRUGS (1)
  1. DIDRONEL [Suspect]
     Dosage: DAILY, ORAL
     Route: 048
     Dates: start: 20010101, end: 20110101

REACTIONS (2)
  - OESOPHAGEAL SQUAMOUS CELL CARCINOMA [None]
  - DYSPHAGIA [None]
